FAERS Safety Report 5156808-0 (Version None)
Quarter: 2006Q4

REPORT INFORMATION
  Report Type: 
  Country: None (occurrence: None)
  Receive Date: 20061115
  Receipt Date: 20061102
  Transmission Date: 20070319
  Serious: Yes (Hospitalization, Other)
  Sender: FDA-Public Use
  Company Number: 2006134805

PATIENT
  Age: 32 Year
  Sex: Male
  Weight: 50 kg

DRUGS (1)
  1. ZIPRASIDONE HCL [Suspect]
     Dosage: 120 MG (60 MG, 2 IN 1 D)

REACTIONS (16)
  - ABNORMAL BEHAVIOUR [None]
  - ALANINE AMINOTRANSFERASE INCREASED [None]
  - ASPARTATE AMINOTRANSFERASE INCREASED [None]
  - BLOOD CREATINE PHOSPHOKINASE INCREASED [None]
  - BLOOD LACTATE DEHYDROGENASE INCREASED [None]
  - CEREBRAL ATROPHY [None]
  - CONDITION AGGRAVATED [None]
  - GRAND MAL CONVULSION [None]
  - HALLUCINATION, AUDITORY [None]
  - HEPATITIS A ANTIBODY POSITIVE [None]
  - HYPONATRAEMIA [None]
  - POLYDIPSIA [None]
  - PSYCHOTIC DISORDER [None]
  - SOMNOLENCE [None]
  - SPEECH DISORDER [None]
  - WHITE BLOOD CELL COUNT INCREASED [None]
